FAERS Safety Report 4417031-8 (Version None)
Quarter: 2004Q3

REPORT INFORMATION
  Report Type: 
  Country: None (occurrence: None)
  Receive Date: 20040802
  Receipt Date: 20040722
  Transmission Date: 20050211
  Serious: Yes (Other)
  Sender: FDA-Public Use
  Company Number: 2003145497US

PATIENT
  Age: 6 Year
  Sex: Male
  Weight: 19.1 kg

DRUGS (5)
  1. GENOTROPIN [Suspect]
     Indication: HYPOPITUITARISM
     Dates: start: 20030801, end: 20031206
  2. GENOTROPIN [Suspect]
     Dosage: 5.6 MG, WEEKLY, SUBCUTANEOUS
     Route: 058
     Dates: start: 20020705, end: 20021213
  3. CORTEF [Concomitant]
  4. DITROPAN [Concomitant]
  5. LEVOXYL [Concomitant]

REACTIONS (3)
  - CEREBRAL CYST [None]
  - NEOPLASM RECURRENCE [None]
  - OPTIC TRACT GLIOMA [None]
